FAERS Safety Report 26060824 (Version 1)
Quarter: 2025Q4

REPORT INFORMATION
  Report Type: Spontaneous
  Country: JP (occurrence: JP)
  Receive Date: 20251118
  Receipt Date: 20251118
  Transmission Date: 20260118
  Serious: Yes (Other)
  Sender: PFIZER
  Company Number: JP-PFIZER INC-PV202500132857

PATIENT
  Age: 7 Decade
  Sex: Female

DRUGS (6)
  1. BEVACIZUMAB [Suspect]
     Active Substance: BEVACIZUMAB
     Indication: Invasive lobular breast carcinoma
     Dosage: UNK
  2. PACLITAXEL [Suspect]
     Active Substance: PACLITAXEL
     Indication: Invasive lobular breast carcinoma
     Dosage: UNK
  3. PALBOCICLIB [Suspect]
     Active Substance: PALBOCICLIB
     Indication: Invasive lobular breast carcinoma
     Dosage: UNK
  4. ANASTROZOLE [Suspect]
     Active Substance: ANASTROZOLE
     Indication: Invasive lobular breast carcinoma
     Dosage: UNK
  5. CARBOPLATIN [Suspect]
     Active Substance: CARBOPLATIN
     Indication: Invasive lobular breast carcinoma
     Dosage: UNK
  6. FULVESTRANT [Suspect]
     Active Substance: FULVESTRANT
     Indication: Invasive lobular breast carcinoma
     Dosage: UNK

REACTIONS (1)
  - Drug-induced liver injury [Not Recovered/Not Resolved]
